FAERS Safety Report 20487860 (Version 3)
Quarter: 2022Q1

REPORT INFORMATION
  Report Type: Spontaneous
  Country: JP (occurrence: JP)
  Receive Date: 20220218
  Receipt Date: 20220331
  Transmission Date: 20220423
  Serious: Yes (Hospitalization, Other)
  Sender: FDA-Public Use
  Company Number: JP-TAKEDA-2022TJP019147

PATIENT
  Age: 47 Year
  Sex: Female
  Weight: 51.2 kg

DRUGS (16)
  1. ENTYVIO [Suspect]
     Active Substance: VEDOLIZUMAB
     Indication: Crohn^s disease
     Dosage: 300 MILLIGRAM
     Route: 065
     Dates: start: 20191106
  2. PENTASA [Concomitant]
     Active Substance: MESALAMINE
     Indication: Crohn^s disease
     Dosage: 3000 MILLIGRAM
     Route: 065
     Dates: start: 20110530
  3. BIO-THREE [Concomitant]
     Active Substance: HERBALS
     Indication: Crohn^s disease
     Dosage: 6 DOSAGE FORM
     Route: 065
     Dates: start: 20110530
  4. HERBALS [Concomitant]
     Active Substance: HERBALS
     Indication: Crohn^s disease
     Dosage: 15 GRAM
     Route: 065
     Dates: start: 20110530, end: 20170914
  5. HERBALS [Concomitant]
     Active Substance: HERBALS
     Dosage: 7.5 GRAM
     Route: 065
     Dates: start: 20170915, end: 20171011
  6. HERBALS [Concomitant]
     Active Substance: HERBALS
     Dosage: 15 GRAM
     Route: 065
     Dates: start: 20171012
  7. AMINO ACIDS\CARBOHYDRATES\MINERALS\SOYBEAN OIL\VITAMINS [Concomitant]
     Active Substance: AMINO ACIDS\CARBOHYDRATES\MINERALS\SOYBEAN OIL\VITAMINS
     Indication: Crohn^s disease
     Dosage: 160 GRAM
     Route: 065
     Dates: start: 20110831, end: 20140605
  8. AMINO ACIDS\CARBOHYDRATES\MINERALS\SOYBEAN OIL\VITAMINS [Concomitant]
     Active Substance: AMINO ACIDS\CARBOHYDRATES\MINERALS\SOYBEAN OIL\VITAMINS
     Dosage: 240 GRAM
     Route: 065
     Dates: start: 20140606, end: 20140623
  9. AMINO ACIDS\CARBOHYDRATES\MINERALS\SOYBEAN OIL\VITAMINS [Concomitant]
     Active Substance: AMINO ACIDS\CARBOHYDRATES\MINERALS\SOYBEAN OIL\VITAMINS
     Dosage: 160 GRAM
     Route: 065
     Dates: start: 20141121, end: 20150129
  10. AMINO ACIDS\CARBOHYDRATES\MINERALS\SOYBEAN OIL\VITAMINS [Concomitant]
     Active Substance: AMINO ACIDS\CARBOHYDRATES\MINERALS\SOYBEAN OIL\VITAMINS
     Dosage: 80 GRAM
     Route: 065
     Dates: start: 20150130, end: 20151001
  11. AMINO ACIDS\CARBOHYDRATES\MINERALS\SOYBEAN OIL\VITAMINS [Concomitant]
     Active Substance: AMINO ACIDS\CARBOHYDRATES\MINERALS\SOYBEAN OIL\VITAMINS
     Dosage: 160 GRAM
     Route: 065
     Dates: start: 20151002, end: 20170420
  12. AMINO ACIDS\CARBOHYDRATES\MINERALS\SOYBEAN OIL\VITAMINS [Concomitant]
     Active Substance: AMINO ACIDS\CARBOHYDRATES\MINERALS\SOYBEAN OIL\VITAMINS
     Dosage: 160 GRAM
     Route: 065
     Dates: start: 20170630, end: 20170818
  13. AMINO ACIDS\CARBOHYDRATES\MINERALS\SOYBEAN OIL\VITAMINS [Concomitant]
     Active Substance: AMINO ACIDS\CARBOHYDRATES\MINERALS\SOYBEAN OIL\VITAMINS
     Dosage: 160 GRAM
     Route: 065
     Dates: start: 20171108, end: 20171219
  14. AMINO ACIDS\CARBOHYDRATES\MINERALS\SOYBEAN OIL\VITAMINS [Concomitant]
     Active Substance: AMINO ACIDS\CARBOHYDRATES\MINERALS\SOYBEAN OIL\VITAMINS
     Dosage: 160 GRAM
     Route: 065
     Dates: start: 20180326, end: 20180529
  15. AMINO ACIDS\CARBOHYDRATES\MINERALS\SOYBEAN OIL\VITAMINS [Concomitant]
     Active Substance: AMINO ACIDS\CARBOHYDRATES\MINERALS\SOYBEAN OIL\VITAMINS
     Dosage: 160 GRAM
     Route: 065
     Dates: start: 20181226
  16. AZATHIOPRINE [Concomitant]
     Active Substance: AZATHIOPRINE
     Indication: Crohn^s disease
     Dosage: 50 MILLIGRAM
     Route: 065
     Dates: start: 20180326

REACTIONS (1)
  - Anal stenosis [Unknown]

NARRATIVE: CASE EVENT DATE: 20220111
